FAERS Safety Report 10097757 (Version 1)
Quarter: 2014Q2

REPORT INFORMATION
  Report Type: Spontaneous
  Country: US (occurrence: US)
  Receive Date: 20140423
  Receipt Date: 20140423
  Transmission Date: 20141212
  Serious: No
  Sender: FDA-Public Use
  Company Number: US-BIOGENIDEC-2014BI034956

PATIENT
  Age: 41 Year
  Sex: Female
  Weight: 57 kg

DRUGS (9)
  1. TECFIDERA [Suspect]
     Indication: MULTIPLE SCLEROSIS
     Dates: start: 201205
  2. TYSABRI [Concomitant]
     Route: 042
     Dates: start: 2012, end: 2012
  3. VESICARE [Concomitant]
     Dates: start: 2012
  4. FLOMAX [Concomitant]
     Dates: start: 2013
  5. RITALIN [Concomitant]
     Dates: start: 201309
  6. CONTRACEPTIVES [Concomitant]
     Dates: start: 2009
  7. MELOXICAM [Concomitant]
     Dates: start: 201309
  8. CYMBALTA [Concomitant]
     Dates: start: 201311
  9. AMPYRA [Concomitant]
     Indication: GAIT DISTURBANCE
     Route: 048
     Dates: start: 2013, end: 2014

REACTIONS (2)
  - Gait disturbance [Not Recovered/Not Resolved]
  - Mobility decreased [Not Recovered/Not Resolved]
